FAERS Safety Report 7167129-9 (Version None)
Quarter: 2010Q4

REPORT INFORMATION
  Report Type: 
  Country: None (occurrence: None)
  Receive Date: 20101202
  Receipt Date: 20101025
  Transmission Date: 20110411
  Serious: Yes (Death, Hospitalization)
  Sender: FDA-Public Use
  Company Number: 124133

PATIENT
  Age: 86 Year
  Sex: Male
  Weight: 63.8 kg

DRUGS (29)
  1. CYTARABINE [Suspect]
     Indication: ACUTE MYELOID LEUKAEMIA
     Dosage: 33.2 MG MILLIGRAM(S) ( 1 DAY ), SUBCUTANEOUS,   34 MG MILLIGRAM(S) ( 1 DAY )
     Route: 058
     Dates: start: 20081122, end: 20081212
  2. CYTARABINE [Suspect]
     Indication: ACUTE MYELOID LEUKAEMIA
     Dosage: 33.2 MG MILLIGRAM(S) ( 1 DAY ), SUBCUTANEOUS,   34 MG MILLIGRAM(S) ( 1 DAY )
     Route: 058
     Dates: start: 20081231, end: 20090103
  3. (SENNA ALEXANDRINA) [Concomitant]
  4. PRIMPERAN TAB [Concomitant]
  5. NITROGLYCERIN [Concomitant]
  6. (PLATYCODON GRANDIFLORUM) [Concomitant]
  7. NERISONE [Concomitant]
  8. LORAZEPAM [Concomitant]
  9. (ALLERMIN /00072502/) [Concomitant]
  10. DECADRON [Concomitant]
  11. AMLODIPINE [Concomitant]
  12. LACTULOSE [Concomitant]
  13. (ZOLPIDEM) [Concomitant]
  14. TRIAMCINOLONE ACETONIDE [Concomitant]
  15. (BENAZON) [Concomitant]
  16. (BORRAGINOL A) [Concomitant]
  17. ACETYLCYSTEINE [Concomitant]
  18. LEVOFLOXACIN [Concomitant]
  19. (MAGNESIUM) [Concomitant]
  20. COMBIVENT [Concomitant]
  21. (TRANSAMIN) [Concomitant]
  22. CEFTAZIDIME [Concomitant]
  23. TIGECYCLINE [Concomitant]
  24. MEGESTROL ACETATE [Concomitant]
  25. TRAMADOL HYDROCHLORIDE [Concomitant]
  26. (CO-DIOVAN) [Concomitant]
  27. (METOCLORPAMIDE) [Concomitant]
  28. (DICHLOTRIDE  /00022001/) [Concomitant]
  29. (REGROW ) [Concomitant]

REACTIONS (16)
  - ANAPHYLACTIC REACTION [None]
  - AORTIC CALCIFICATION [None]
  - BRADYCARDIA [None]
  - CARDIAC FAILURE [None]
  - CELLULITIS [None]
  - DEPRESSED LEVEL OF CONSCIOUSNESS [None]
  - EMPHYSEMA [None]
  - FEBRILE NEUTROPENIA [None]
  - HAEMODIALYSIS [None]
  - NO THERAPEUTIC RESPONSE [None]
  - PLEURAL FIBROSIS [None]
  - PNEUMONIA [None]
  - REFUSAL OF TREATMENT BY RELATIVE [None]
  - RENAL FAILURE ACUTE [None]
  - SEPTIC SHOCK [None]
  - SPINAL OSTEOARTHRITIS [None]
